FAERS Safety Report 8120815-6 (Version None)
Quarter: 2012Q1

REPORT INFORMATION
  Report Type: 
  Country: None (occurrence: None)
  Receive Date: 20120207
  Receipt Date: 20120204
  Transmission Date: 20120608
  Serious: Yes (Death, Hospitalization, Other)
  Sender: FDA-Public Use
  Company Number: US-BRISTOL-MYERS SQUIBB COMPANY-15218894

PATIENT
  Age: 69 Year
  Sex: Male

DRUGS (14)
  1. IPILIMUMAB [Suspect]
     Indication: MALIGNANT MELANOMA
     Dosage: 253.5MG
     Route: 042
     Dates: start: 20100701, end: 20100722
  2. NEXIUM [Concomitant]
  3. MEGACE [Concomitant]
  4. KEPPRA [Concomitant]
     Dates: start: 20100412
  5. REMERON [Concomitant]
     Dates: start: 20100722
  6. SEROQUEL [Concomitant]
     Dates: start: 20100807
  7. PROTONIX [Concomitant]
     Dates: start: 20100807
  8. AMLODIPINE [Concomitant]
  9. SODIUM PHOSPHATES [Concomitant]
  10. PROVIGIL [Concomitant]
     Dates: start: 20100722
  11. BENAZEPRIL HYDROCHLORIDE [Concomitant]
  12. ASACOL [Concomitant]
     Dates: start: 20100807
  13. VANCOMYCIN [Concomitant]
  14. DECADRON [Concomitant]
     Dates: start: 20100807

REACTIONS (11)
  - INFECTION [None]
  - DEHYDRATION [None]
  - COLITIS [None]
  - NEOPLASM PROGRESSION [None]
  - MENTAL STATUS CHANGES [None]
  - SEPSIS [None]
  - NEOPLASM MALIGNANT [None]
  - LEUKOCYTOSIS [None]
  - PSYCHOTIC DISORDER [None]
  - DIARRHOEA [None]
  - BACTERAEMIA [None]
